FAERS Safety Report 8620784-6 (Version None)
Quarter: 2012Q3

REPORT INFORMATION
  Report Type: 
  Country: None (occurrence: None)
  Receive Date: 20120816
  Receipt Date: 20120816
  Transmission Date: 20120928
  Serious: Yes (Life-Threatening)
  Sender: FDA-Public Use
  Company Number: None

PATIENT
  Age: 84 Year
  Sex: Female
  Weight: 85 kg

DRUGS (7)
  1. ENOXAPARIN [Concomitant]
  2. RIVAROXABAN 10 MG, JANSSEN PHARMACEUTICAL, INC. [Suspect]
     Indication: THROMBOSIS PROPHYLAXIS
     Dosage: 10 MG, DAILY, PO
     Route: 048
     Dates: start: 20120119, end: 20120120
  3. RIVAROXABAN 10 MG, JANSSEN PHARMACEUTICAL, INC. [Suspect]
     Indication: KNEE ARTHROPLASTY
     Dosage: 10 MG, DAILY, PO
     Route: 048
     Dates: start: 20120119, end: 20120120
  4. SEQUENTIAL COMPRESSION DEVICE [Concomitant]
  5. ASPIRIN [Concomitant]
  6. HEPARIN [Concomitant]
  7. WARFARIN SODIUM [Concomitant]

REACTIONS (4)
  - NEOPLASM [None]
  - LETHARGY [None]
  - UNRESPONSIVE TO STIMULI [None]
  - POST PROCEDURAL PULMONARY EMBOLISM [None]
